FAERS Safety Report 23629040 (Version 1)
Quarter: 2024Q1

REPORT INFORMATION
  Report Type: Spontaneous
  Country: BE (occurrence: BE)
  Receive Date: 20240313
  Receipt Date: 20240313
  Transmission Date: 20240409
  Serious: Yes (Other)
  Sender: FDA-Public Use
  Company Number: BE-BAUSCH-BL-2024-004167

PATIENT
  Age: 60 Year
  Sex: Female

DRUGS (2)
  1. WELLBUTRIN XL [Suspect]
     Active Substance: BUPROPION HYDROCHLORIDE
     Indication: Depression
     Route: 065
     Dates: start: 20240224
  2. ESCITALOPRAM [Concomitant]
     Active Substance: ESCITALOPRAM OXALATE
     Indication: Product used for unknown indication

REACTIONS (5)
  - Diverticulitis [Unknown]
  - Polyp [Unknown]
  - Product residue present [Unknown]
  - Sleep disorder [Unknown]
  - Dolichocolon [Unknown]

NARRATIVE: CASE EVENT DATE: 20240101
